FAERS Safety Report 10038002 (Version 2)
Quarter: 2014Q1

REPORT INFORMATION
  Report Type: Spontaneous
  Country: GB (occurrence: GB)
  Receive Date: 20140326
  Receipt Date: 20140326
  Transmission Date: 20141002
  Serious: Yes (Other)
  Sender: FDA-Public Use
  Company Number: GB-PFIZER INC-2013152249

PATIENT
  Age: 63 Year
  Sex: Male

DRUGS (9)
  1. ATENOLOL [Suspect]
     Dosage: 50 MG, UNK
     Route: 048
     Dates: start: 2012
  2. ASPIRIN [Concomitant]
     Dosage: UNK
  3. BYETTA [Concomitant]
     Dosage: UNK
  4. CAPTOPRIL [Concomitant]
     Dosage: UNK
  5. GLICLAZIDE [Concomitant]
     Dosage: UNK
  6. METFORMIN [Concomitant]
     Dosage: UNK
  7. ACNE STATIN [Concomitant]
     Dosage: UNK
  8. L-THYROXIN [Concomitant]
     Dosage: UNK
  9. VIAGRA [Concomitant]
     Dosage: UNK

REACTIONS (7)
  - Anorgasmia [Not Recovered/Not Resolved]
  - Loss of libido [Not Recovered/Not Resolved]
  - Mood altered [Recovering/Resolving]
  - Arthralgia [Recovering/Resolving]
  - Weight decreased [Unknown]
  - Depression [Not Recovered/Not Resolved]
  - Erectile dysfunction [Recovering/Resolving]
